FAERS Safety Report 5959838-1 (Version None)
Quarter: 2008Q4

REPORT INFORMATION
  Report Type: 
  Country: None (occurrence: None)
  Receive Date: 20081120
  Receipt Date: 20081117
  Transmission Date: 20090506
  Serious: Yes (Hospitalization)
  Sender: FDA-Public Use
  Company Number: B0543537A

PATIENT
  Age: 79 Year
  Sex: Female
  Weight: 36 kg

DRUGS (4)
  1. VALTREX [Suspect]
     Indication: DRUG USE FOR UNKNOWN INDICATION
     Dosage: 2G THREE TIMES PER DAY
     Route: 048
     Dates: start: 20070531, end: 20070606
  2. KENTAN [Concomitant]
     Indication: ANALGESIA
     Dosage: 120MG PER DAY
     Route: 048
     Dates: start: 20070531, end: 20070606
  3. ANDERM [Concomitant]
     Indication: DRUG USE FOR UNKNOWN INDICATION
     Route: 061
     Dates: start: 20070531, end: 20070601
  4. THERADIA [Concomitant]
     Indication: ULCER
     Route: 061
     Dates: start: 20070602, end: 20070606

REACTIONS (5)
  - BLOOD PRESSURE INCREASED [None]
  - DELIRIUM [None]
  - DIZZINESS [None]
  - HALLUCINATION, VISUAL [None]
  - RENAL FAILURE [None]
